FAERS Safety Report 4381755-1 (Version None)
Quarter: 2004Q2

REPORT INFORMATION
  Report Type: 
  Country: None (occurrence: None)
  Receive Date: 20040603
  Receipt Date: 20030807
  Transmission Date: 20050107
  Serious: Yes (Hospitalization)
  Sender: FDA-Public Use
  Company Number: 200317141US

PATIENT
  Sex: Female
  Weight: 100 kg

DRUGS (3)
  1. LOVENOX [Suspect]
     Indication: PULMONARY EMBOLISM
     Dosage: 1 MG/KG ONCE
     Dates: start: 20030806, end: 20030806
  2. WARFARIN SODIUM [Concomitant]
  3. VITAMIN K TAB [Concomitant]

REACTIONS (1)
  - UTERINE HAEMORRHAGE [None]
